FAERS Safety Report 14522506 (Version 8)
Quarter: 2022Q4

REPORT INFORMATION
  Report Type: Spontaneous
  Country: PT (occurrence: PT)
  Receive Date: 20180212
  Receipt Date: 20221129
  Transmission Date: 20230113
  Serious: Yes (Other)
  Sender: FDA-Public Use
  Company Number: PHHY2017PT200721

PATIENT
  Age: 47 Year
  Sex: Female

DRUGS (8)
  1. CYCLOSPORINE [Suspect]
     Active Substance: CYCLOSPORINE
     Indication: Systemic lupus erythematosus
     Dosage: 150 MG, QD
     Route: 065
  2. METHYLPREDNISOLONE [Suspect]
     Active Substance: METHYLPREDNISOLONE
     Indication: Systemic lupus erythematosus
     Dosage: 500 MG, UNK
     Route: 042
  3. MYCOPHENOLATE MOFETIL [Suspect]
     Active Substance: MYCOPHENOLATE MOFETIL
     Indication: Systemic lupus erythematosus
     Dosage: 3 G, QD
     Route: 065
  4. MYCOPHENOLATE MOFETIL [Suspect]
     Active Substance: MYCOPHENOLATE MOFETIL
     Dosage: 2 G/KG, QD
     Route: 065
  5. AZATHIOPRINE [Suspect]
     Active Substance: AZATHIOPRINE
     Indication: Systemic lupus erythematosus
     Dosage: 75 MG, UNKNOWN
     Route: 065
  6. PREDNISOLONE [Suspect]
     Active Substance: PREDNISOLONE
     Indication: Systemic lupus erythematosus
     Dosage: 1 MG/KG, QD
     Route: 065
  7. IMMUNE GLOBULIN NOS [Suspect]
     Active Substance: IMMUNE GLOBULIN NOS
     Indication: Systemic lupus erythematosus
     Dosage: 2 G/KG, QD
     Route: 042
  8. FILGRASTIM [Concomitant]
     Active Substance: FILGRASTIM
     Indication: Febrile neutropenia
     Dosage: UNK
     Route: 065

REACTIONS (2)
  - Cytomegalovirus infection [Unknown]
  - Product use in unapproved indication [Unknown]
